FAERS Safety Report 7425311-7 (Version None)
Quarter: 2011Q2

REPORT INFORMATION
  Report Type: 
  Country: None (occurrence: None)
  Receive Date: 20110420
  Receipt Date: 20110415
  Transmission Date: 20111010
  Serious: Yes (Life-Threatening)
  Sender: FDA-Public Use
  Company Number: PHHY2011US14682

PATIENT
  Sex: Female

DRUGS (9)
  1. METOPROLOL [Concomitant]
     Dosage: 50 MG, UNK
  2. PROZAC [Concomitant]
     Dosage: 40 MG, UNK
  3. PANTOPRAZOLE [Concomitant]
     Dosage: 40 MG, UNK
  4. PROMETHAZINE HYDROCHLORIDE [Concomitant]
     Dosage: 25 MG, UNK
  5. KLONOPIN [Concomitant]
     Dosage: 1 MG, UNK
  6. PLAVIX [Concomitant]
     Dosage: 75 MG, ONCE/SINGLE
  7. DEPLIN [Concomitant]
     Dosage: 15 MG, ONCE/SINGLE
  8. RECLAST [Suspect]
     Dosage: 5 MG, YEARLY
     Route: 042
     Dates: start: 20110203
  9. SYNTHROID [Concomitant]
     Dosage: 25 MG, UNK

REACTIONS (18)
  - DYSPNOEA [None]
  - PRURITUS [None]
  - HYPERHIDROSIS [None]
  - BACK PAIN [None]
  - ARTHRALGIA [None]
  - MALAISE [None]
  - INFLUENZA [None]
  - HEADACHE [None]
  - FATIGUE [None]
  - FEELING ABNORMAL [None]
  - PAIN [None]
  - BONE PAIN [None]
  - MYALGIA [None]
  - BEDRIDDEN [None]
  - ALOPECIA [None]
  - ASTHENIA [None]
  - ORAL PAIN [None]
  - PAIN IN EXTREMITY [None]
